FAERS Safety Report 20056652 (Version 1)
Quarter: 2021Q4

REPORT INFORMATION
  Report Type: Report from Study
  Country: US (occurrence: US)
  Receive Date: 20211111
  Receipt Date: 20211111
  Transmission Date: 20220303
  Serious: Yes (Other)
  Sender: FDA-Public Use
  Company Number: US-ABBVIE-21K-163-4152528-00

PATIENT
  Sex: Female

DRUGS (3)
  1. RINVOQ [Suspect]
     Active Substance: UPADACITINIB
     Indication: Rheumatoid arthritis
     Route: 048
  2. MODERNA COVID-19 VACCINE [Suspect]
     Active Substance: CX-024414
     Indication: COVID-19 immunisation
     Route: 030
     Dates: start: 20210118, end: 20210118
  3. MODERNA COVID-19 VACCINE [Suspect]
     Active Substance: CX-024414
     Route: 030
     Dates: start: 20210218, end: 20210218

REACTIONS (3)
  - Wrist surgery [Unknown]
  - Vaccination site pain [Unknown]
  - Cataract [Unknown]

NARRATIVE: CASE EVENT DATE: 20210101
